FAERS Safety Report 14831213 (Version 6)
Quarter: 2022Q2

REPORT INFORMATION
  Report Type: Spontaneous
  Country: US (occurrence: None)
  Receive Date: 20180501
  Receipt Date: 20220421
  Transmission Date: 20220721
  Serious: Yes (Hospitalization, Other)
  Sender: FDA-Public Use
  Company Number: 2018SE50376

PATIENT
  Age: 702 Month
  Sex: Female
  Weight: 72.6 kg

DRUGS (64)
  1. NEXIUM [Suspect]
     Active Substance: ESOMEPRAZOLE MAGNESIUM
     Route: 048
     Dates: start: 1996, end: 2016
  2. NEXIUM [Suspect]
     Active Substance: ESOMEPRAZOLE MAGNESIUM
     Dosage: GENERIC
     Route: 065
     Dates: start: 2014
  3. NEXIUM [Suspect]
     Active Substance: ESOMEPRAZOLE MAGNESIUM
     Route: 048
     Dates: start: 2000, end: 2009
  4. NEXIUM 24HR [Suspect]
     Active Substance: ESOMEPRAZOLE MAGNESIUM
     Route: 048
     Dates: start: 1996, end: 2016
  5. PRILOSEC [Suspect]
     Active Substance: OMEPRAZOLE MAGNESIUM
     Indication: Gastrooesophageal reflux disease
     Route: 048
     Dates: start: 1996, end: 2016
  6. PRILOSEC [Suspect]
     Active Substance: OMEPRAZOLE MAGNESIUM
     Indication: Gastrooesophageal reflux disease
     Route: 048
     Dates: start: 2010, end: 2011
  7. PRILOSEC [Suspect]
     Active Substance: OMEPRAZOLE MAGNESIUM
     Indication: Gastrooesophageal reflux disease
     Dosage: GENERIC
     Route: 065
     Dates: start: 2010
  8. PRILOSEC [Suspect]
     Active Substance: OMEPRAZOLE MAGNESIUM
     Indication: Gastrooesophageal reflux disease
     Dosage: GENERIC
     Route: 065
     Dates: start: 2010
  9. PRILOSEC OTC [Suspect]
     Active Substance: OMEPRAZOLE MAGNESIUM
     Route: 048
     Dates: start: 1996, end: 2016
  10. PREVACID [Suspect]
     Active Substance: LANSOPRAZOLE
     Indication: Gastrooesophageal reflux disease
     Route: 065
     Dates: start: 1996, end: 2016
  11. PREVACID [Suspect]
     Active Substance: LANSOPRAZOLE
     Indication: Gastrooesophageal reflux disease
     Route: 065
     Dates: start: 2010, end: 2011
  12. PREVACID [Suspect]
     Active Substance: LANSOPRAZOLE
     Indication: Gastrooesophageal reflux disease
     Dosage: GENERIC
     Route: 065
     Dates: start: 2010
  13. PREVACID [Suspect]
     Active Substance: LANSOPRAZOLE
     Indication: Gastrooesophageal reflux disease
     Route: 065
     Dates: start: 2010, end: 2013
  14. PREVACID 24 HR [Suspect]
     Active Substance: LANSOPRAZOLE
     Route: 065
     Dates: start: 1996, end: 2016
  15. DEXILANT [Suspect]
     Active Substance: DEXLANSOPRAZOLE
     Indication: Gastrooesophageal reflux disease
     Route: 065
     Dates: start: 1996, end: 2016
  16. DEXILANT [Suspect]
     Active Substance: DEXLANSOPRAZOLE
     Indication: Gastrooesophageal reflux disease
     Route: 065
     Dates: start: 201006, end: 201009
  17. PROTONIX [Suspect]
     Active Substance: PANTOPRAZOLE SODIUM
     Indication: Gastrooesophageal reflux disease
     Route: 065
     Dates: start: 1996, end: 2016
  18. PROTONIX [Suspect]
     Active Substance: PANTOPRAZOLE SODIUM
     Indication: Gastrooesophageal reflux disease
     Dosage: GENERIC
     Route: 065
     Dates: start: 2012
  19. PROTONIX [Suspect]
     Active Substance: PANTOPRAZOLE SODIUM
     Indication: Gastrooesophageal reflux disease
     Dosage: GENERIC
     Route: 065
     Dates: start: 2010
  20. FENTANYL [Concomitant]
     Active Substance: FENTANYL
  21. FLUCONAZOLE [Concomitant]
     Active Substance: FLUCONAZOLE
  22. METOCLOPRAMIDE [Concomitant]
     Active Substance: METOCLOPRAMIDE
  23. TRAZODONE [Concomitant]
     Active Substance: TRAZODONE HYDROCHLORIDE
  24. AMITIZA [Concomitant]
     Active Substance: LUBIPROSTONE
  25. AZITHROMYCIN [Concomitant]
     Active Substance: AZITHROMYCIN
  26. CALCITRIOL [Concomitant]
     Active Substance: CALCITRIOL
  27. CALCIUM ACETATE [Concomitant]
     Active Substance: CALCIUM ACETATE
  28. ACTONEL [Concomitant]
     Active Substance: RISEDRONATE SODIUM
  29. CLONIDINE [Concomitant]
     Active Substance: CLONIDINE
  30. PRAVASTATIN [Concomitant]
     Active Substance: PRAVASTATIN
  31. LISINOPRIL [Concomitant]
     Active Substance: LISINOPRIL
  32. MELOXICAM [Concomitant]
     Active Substance: MELOXICAM
  33. PREDNISONE [Concomitant]
     Active Substance: PREDNISONE
  34. FAMOTIDINE [Concomitant]
     Active Substance: FAMOTIDINE
     Indication: Gastrooesophageal reflux disease
  35. VITAMIN D [Concomitant]
     Active Substance: VITAMIN D NOS
  36. PEPCID [Concomitant]
     Active Substance: FAMOTIDINE
  37. ROPINIROLE [Concomitant]
     Active Substance: ROPINIROLE
  38. CYCLOBENZAPRINE [Concomitant]
     Active Substance: CYCLOBENZAPRINE
  39. VENLAFAXINE [Concomitant]
     Active Substance: VENLAFAXINE HYDROCHLORIDE
  40. ASACOL [Concomitant]
     Active Substance: MESALAMINE
  41. CEPHALEXIN [Concomitant]
     Active Substance: CEPHALEXIN
  42. PROMETHAZINE [Concomitant]
     Active Substance: PROMETHAZINE HYDROCHLORIDE
  43. HYDRALAZINE [Concomitant]
     Active Substance: HYDRALAZINE HYDROCHLORIDE
  44. CARBAMAZEPINE [Concomitant]
     Active Substance: CARBAMAZEPINE
  45. DIAZEPAM [Concomitant]
     Active Substance: DIAZEPAM
  46. CELEBREX [Concomitant]
     Active Substance: CELECOXIB
  47. ALENDRONATE [Concomitant]
     Active Substance: ALENDRONATE SODIUM
  48. FLUOXETINE [Concomitant]
     Active Substance: FLUOXETINE HYDROCHLORIDE
  49. DIVALPROEX SODIUM [Concomitant]
     Active Substance: DIVALPROEX SODIUM
  50. LORAZEPAM [Concomitant]
     Active Substance: LORAZEPAM
  51. LEVAQUIN [Concomitant]
     Active Substance: LEVOFLOXACIN
  52. NIROSTAT [Concomitant]
  53. NITROFURANTOIN [Concomitant]
     Active Substance: NITROFURANTOIN
  54. XOPENEX [Concomitant]
     Active Substance: LEVALBUTEROL HYDROCHLORIDE
  55. SUCRALFATE [Concomitant]
     Active Substance: SUCRALFATE
  56. SEROQUEL [Concomitant]
     Active Substance: QUETIAPINE FUMARATE
  57. CIPROFLOXACIN [Concomitant]
     Active Substance: CIPROFLOXACIN
  58. CARISOPRODOL [Concomitant]
     Active Substance: CARISOPRODOL
  59. METRONIDAZOLE [Concomitant]
     Active Substance: METRONIDAZOLE
  60. DICYCLOMINE [Concomitant]
     Active Substance: DICYCLOMINE HYDROCHLORIDE
  61. MIRTAZAPINE [Concomitant]
     Active Substance: MIRTAZAPINE
  62. ONDANSETRON [Concomitant]
     Active Substance: ONDANSETRON
  63. TIZANIDINE [Concomitant]
     Active Substance: TIZANIDINE
  64. NIFEDIPINE [Concomitant]
     Active Substance: NIFEDIPINE

REACTIONS (9)
  - Chronic kidney disease [Not Recovered/Not Resolved]
  - Renal failure [Not Recovered/Not Resolved]
  - Acute kidney injury [Unknown]
  - Depression [Not Recovered/Not Resolved]
  - Anxiety [Not Recovered/Not Resolved]
  - Carotid artery disease [Not Recovered/Not Resolved]
  - Glomerulonephritis membranoproliferative [Not Recovered/Not Resolved]
  - End stage renal disease [Not Recovered/Not Resolved]
  - Bipolar disorder [Unknown]

NARRATIVE: CASE EVENT DATE: 20110801
